FAERS Safety Report 4268606-0 (Version None)
Quarter: 2004Q1

REPORT INFORMATION
  Report Type: 
  Country: None (occurrence: None)
  Receive Date: 20040108
  Receipt Date: 20031226
  Transmission Date: 20041129
  Serious: Yes (Death, Hospitalization)
  Sender: FDA-Public Use
  Company Number: 200323037GDDC

PATIENT
  Age: 67 Year
  Sex: Male

DRUGS (8)
  1. INDAPAMIDE [Suspect]
     Dosage: 1.5 MG/DAY PO
     Route: 048
  2. GLICLAZIDE (DIAMICRON) [Suspect]
     Indication: DIABETES MELLITUS NON-INSULIN-DEPENDENT
     Dosage: 160 MG/DAY PO
     Route: 048
  3. METFORMIN HCL [Suspect]
     Dosage: 1.7 G/DAY PO
     Route: 048
  4. MICARDIS [Suspect]
     Dosage: 80 MG/DAY PO
     Route: 048
  5. NAPROSYN [Suspect]
     Dosage: 1 G/DAY PO
     Route: 048
  6. NORVASC [Concomitant]
  7. CODEINE PHOSPHATE, PARACETAMOL (PANADEINE) [Concomitant]
  8. PRAVASTATIN SODIUM (PRAVACHOL) [Concomitant]

REACTIONS (2)
  - LACTIC ACIDOSIS [None]
  - RENAL FAILURE ACUTE [None]
